FAERS Safety Report 7978096-X (Version None)
Quarter: 2011Q4

REPORT INFORMATION
  Report Type: 
  Country: None (occurrence: None)
  Receive Date: 20111201
  Receipt Date: 20111121
  Transmission Date: 20120403
  Serious: Yes (Other)
  Sender: FDA-Public Use
  Company Number: 2011SP011327

PATIENT
  Sex: Female

DRUGS (2)
  1. IMPLANON [Suspect]
     Indication: PRODUCT USED FOR UNKNOWN INDICATION
     Dosage: 68 MG; SBDE
     Route: 059
     Dates: start: 20100101, end: 20110301
  2. IMPLANON [Suspect]

REACTIONS (3)
  - PRODUCT QUALITY ISSUE [None]
  - MENSTRUAL DISORDER [None]
  - DEVICE BREAKAGE [None]
